FAERS Safety Report 7955285-1 (Version None)
Quarter: 2011Q4

REPORT INFORMATION
  Report Type: 
  Country: None (occurrence: None)
  Receive Date: 20111202
  Receipt Date: 20111122
  Transmission Date: 20120403
  Serious: Yes (Death)
  Sender: FDA-Public Use
  Company Number: US-CELGENEUS-163-21880-11111681

PATIENT
  Sex: Female

DRUGS (7)
  1. PRILOSEC [Concomitant]
     Dosage: 20 MILLIGRAM
     Route: 065
     Dates: start: 20101101, end: 20111004
  2. ZOMETA [Concomitant]
     Dosage: 4 MILLIGRAM
     Route: 041
     Dates: start: 20060406, end: 20111004
  3. COUMADIN [Concomitant]
     Indication: ATRIAL FIBRILLATION
     Dosage: 4 MILLIGRAM
     Route: 065
     Dates: start: 20100707, end: 20111004
  4. COMPAZINE [Concomitant]
     Indication: NAUSEA
     Dosage: 10 MILLIGRAM
     Route: 065
     Dates: start: 20110816, end: 20111004
  5. REVLIMID [Suspect]
     Indication: MULTIPLE MYELOMA
     Dosage: 25 MILLIGRAM
     Route: 048
     Dates: start: 20100927, end: 20110816
  6. PERCOCET [Concomitant]
     Indication: PAIN
     Dosage: 5/325
     Route: 065
     Dates: start: 20100920, end: 20111004
  7. VELCADE [Concomitant]
     Dosage: 4 MILLIGRAM
     Route: 041
     Dates: start: 20100615, end: 20110816

REACTIONS (3)
  - RESPIRATORY FAILURE [None]
  - CARDIAC FAILURE CONGESTIVE [None]
  - MULTIPLE MYELOMA [None]
